FAERS Safety Report 5099641-0 (Version None)
Quarter: 2006Q3

REPORT INFORMATION
  Report Type: 
  Country: None (occurrence: None)
  Receive Date: 20060908
  Receipt Date: 20060828
  Transmission Date: 20061208
  Serious: Yes (Other)
  Sender: FDA-Public Use
  Company Number: TW-KINGPHARMUSA00001-K200601112

PATIENT
  Age: 77 Year
  Sex: Female

DRUGS (1)
  1. EPINEPHRINE [Suspect]
     Dosage: 3 ML, SINGLE

REACTIONS (4)
  - ECCHYMOSIS [None]
  - GASTROINTESTINAL NECROSIS [None]
  - INJECTION SITE HAEMORRHAGE [None]
  - NECROSIS ISCHAEMIC [None]
